FAERS Safety Report 4268845-9 (Version None)
Quarter: 2004Q1

REPORT INFORMATION
  Report Type: 
  Country: None (occurrence: None)
  Receive Date: 20040109
  Receipt Date: 20031230
  Transmission Date: 20041129
  Serious: Yes (Death)
  Sender: FDA-Public Use
  Company Number: KII-1997-0000704

PATIENT
  Sex: Male

DRUGS (1)
  1. OXYCODONE HCL [Suspect]
     Indication: CANCER PAIN

REACTIONS (2)
  - ADENOCARCINOMA PANCREAS [None]
  - CONDITION AGGRAVATED [None]
